FAERS Safety Report 9797822 (Version 2)
Quarter: 2014Q1

REPORT INFORMATION
  Report Type: Spontaneous
  Country: DE (occurrence: None)
  Receive Date: 20131231
  Receipt Date: 20140107
  Transmission Date: 20141002
  Serious: Yes (Death, Life-Threatening, Hospitalization, Congenital Anomaly, Other)
  Sender: FDA-Public Use
  Company Number: AUR-APL-2013-10839

PATIENT
  Age: 1 Day
  Sex: Female
  Weight: 1.67 kg

DRUGS (4)
  1. PAROXETINE [Suspect]
     Indication: DEPRESSION
     Dosage: 40 MG, 1 IN 1 D
     Route: 064
     Dates: start: 20090414, end: 20090630
  2. ADALAT (NIFEDIPINE) [Concomitant]
  3. FOLIO (FOLIO) [Concomitant]
  4. KADEFUNGIN (CLOTRIMAZOLE) [Concomitant]

REACTIONS (14)
  - Foetal exposure during pregnancy [None]
  - Tracheomalacia [None]
  - Abnormal palmar/plantar creases [None]
  - Anomaly of external ear congenital [None]
  - Tracheo-oesophageal fistula [None]
  - Patent ductus arteriosus [None]
  - Congenital diaphragmatic hernia [None]
  - Vitello-intestinal duct remnant [None]
  - Atrial septal defect [None]
  - Clinodactyly [None]
  - Congenital tracheomalacia [None]
  - Oesophageal atresia [None]
  - Premature rupture of membranes [None]
  - Caesarean section [None]
